FAERS Safety Report 9223047 (Version 2)
Quarter: 2013Q2

REPORT INFORMATION
  Report Type: Report from Study
  Country: DE (occurrence: DE)
  Receive Date: 20130410
  Receipt Date: 20130509
  Transmission Date: 20140414
  Serious: Yes (Other)
  Sender: FDA-Public Use
  Company Number: DE-ROCHE-1210309

PATIENT
  Age: 67 Year
  Sex: Female

DRUGS (3)
  1. ALTEPLASE [Suspect]
     Indication: RETINAL VEIN OCCLUSION
     Route: 050
  2. XYLOCAINE [Concomitant]
     Indication: ANAESTHESIA
  3. BUPIVACAIN [Concomitant]
     Indication: ANAESTHESIA

REACTIONS (2)
  - Drug ineffective [Not Recovered/Not Resolved]
  - Macular fibrosis [Not Recovered/Not Resolved]
